FAERS Safety Report 9789425 (Version 1)
Quarter: 2013Q4

REPORT INFORMATION
  Report Type: Report from Study
  Country: US (occurrence: US)
  Receive Date: 20131231
  Receipt Date: 20131231
  Transmission Date: 20140711
  Serious: Yes (Other)
  Sender: FDA-Public Use
  Company Number: US-ABBVIE-13P-163-1182799-00

PATIENT
  Age: 39 Year
  Sex: Female

DRUGS (8)
  1. HUMIRA [Suspect]
     Indication: CROHN^S DISEASE
     Dates: start: 20131122
  2. HUMIRA [Suspect]
     Dates: start: 20131123
  3. HUMIRA [Suspect]
     Dates: start: 20131206
  4. METFORMIN [Concomitant]
     Indication: TYPE 2 DIABETES MELLITUS
     Dosage: 2000MG IN MORNING AND 2000MG IN EVENING
  5. FLUOXETINE [Concomitant]
     Indication: DEPRESSION
  6. PRAVASTATIN [Concomitant]
     Indication: BLOOD CHOLESTEROL INCREASED
  7. LISINOPRIL [Concomitant]
     Indication: HYPERTENSION
  8. LORTAB [Concomitant]
     Indication: PAIN

REACTIONS (14)
  - Convulsion [Not Recovered/Not Resolved]
  - Stress [Not Recovered/Not Resolved]
  - Feeling abnormal [Unknown]
  - Fall [Unknown]
  - Syncope [Unknown]
  - Aphasia [Unknown]
  - Crohn^s disease [Unknown]
  - Abdominal pain [Unknown]
  - Diarrhoea [Unknown]
  - Vomiting [Unknown]
  - Eating disorder [Unknown]
  - Nausea [Unknown]
  - Furuncle [Not Recovered/Not Resolved]
  - Wound secretion [Not Recovered/Not Resolved]
